FAERS Safety Report 26057574 (Version 1)
Quarter: 2025Q4

REPORT INFORMATION
  Report Type: Spontaneous
  Country: US (occurrence: None)
  Receive Date: 20251118
  Receipt Date: 20251118
  Transmission Date: 20260117
  Serious: No
  Sender: UCB
  Company Number: US-UCBSA-2025029967

PATIENT
  Age: 41 Year

DRUGS (15)
  1. KEPPRA [Suspect]
     Active Substance: LEVETIRACETAM
     Indication: Partial seizures
     Dosage: UNK
  2. KEPPRA [Suspect]
     Active Substance: LEVETIRACETAM
     Dosage: 2000 MILLIGRAM, 2X/DAY (BID)
  3. VIMPAT [Suspect]
     Active Substance: LACOSAMIDE
     Indication: Partial seizures
     Dosage: UNK
  4. VIMPAT [Suspect]
     Active Substance: LACOSAMIDE
     Dosage: 200 MILLIGRAM, 2X/DAY (BID)
  5. VIMPAT [Suspect]
     Active Substance: LACOSAMIDE
     Dosage: 150 MILLIGRAM, 2X/DAY (BID)
  6. MIDAZOLAM [Suspect]
     Active Substance: MIDAZOLAM
     Indication: Sedation
     Dosage: UNK
  7. MIDAZOLAM [Suspect]
     Active Substance: MIDAZOLAM
     Indication: Off label use
  8. PHENYTOIN [Suspect]
     Active Substance: PHENYTOIN
     Indication: Partial seizures
     Dosage: UNK
  9. PHENYTOIN [Suspect]
     Active Substance: PHENYTOIN
     Dosage: 600 MILLIGRAM, QHS
  10. PHENOBARBITAL [Concomitant]
     Active Substance: PHENOBARBITAL
     Indication: Partial seizures
     Dosage: UNK
  11. PHENOBARBITAL [Concomitant]
     Active Substance: PHENOBARBITAL
     Dosage: 64.8 MILLIGRAM, 3 TABS QHS
  12. ZONISAMIDE [Concomitant]
     Active Substance: ZONISAMIDE
     Indication: Partial seizures
     Dosage: 100 MILLIGRAM, ONCE DAILY (QD)
  13. ZONISAMIDE [Concomitant]
     Active Substance: ZONISAMIDE
     Dosage: 200 MILLIGRAM IN 2 WEEKS
  14. ZONISAMIDE [Concomitant]
     Active Substance: ZONISAMIDE
     Dosage: 300 MILLIGRAM, ONCE DAILY (QD)
  15. APIXABAN [Concomitant]
     Active Substance: APIXABAN
     Indication: Deep vein thrombosis
     Dosage: UNK

REACTIONS (3)
  - Multiple-drug resistance [Unknown]
  - Off label use [Unknown]
  - Off label use [Unknown]
